FAERS Safety Report 9100681 (Version 1)
Quarter: 2013Q1

REPORT INFORMATION
  Report Type: Spontaneous
  Country: BR (occurrence: BR)
  Receive Date: 20130215
  Receipt Date: 20130215
  Transmission Date: 20140127
  Serious: Yes (Hospitalization)
  Sender: FDA-Public Use
  Company Number: BR-ROCHE-1191304

PATIENT
  Age: 48 Year
  Sex: Male
  Weight: 112 kg

DRUGS (8)
  1. RIVOTRIL [Suspect]
     Indication: EPILEPSY
     Route: 048
     Dates: start: 2008
  2. ACETYLSALICYLIC ACID ^MONOT^ [Concomitant]
     Route: 065
  3. DIOVAN AMLO [Concomitant]
     Indication: ANGINA PECTORIS
     Route: 065
  4. ATENOLOL + CHLORTHALIDONE [Concomitant]
     Indication: ANGINA PECTORIS
     Route: 065
  5. SINVALIP [Concomitant]
     Route: 065
  6. RISPERDAL CONSTA [Concomitant]
  7. SEROQUEL XR [Concomitant]
  8. DONEURIN [Concomitant]

REACTIONS (1)
  - Angina pectoris [Recovering/Resolving]
